FAERS Safety Report 11412516 (Version 1)
Quarter: 2015Q3

REPORT INFORMATION
  Report Type: Spontaneous
  Country: US (occurrence: US)
  Receive Date: 20150824
  Receipt Date: 20150824
  Transmission Date: 20151125
  Serious: No
  Sender: FDA-Public Use
  Company Number: US-JNJFOC-20150810947

PATIENT
  Age: 49 Year
  Sex: Female
  Weight: 65.32 kg

DRUGS (3)
  1. HERBAL MEDICATION [Concomitant]
     Active Substance: HERBALS
     Indication: THYROID DISORDER
     Route: 065
  2. WOMENS ROGAINE UNSCENTED [Suspect]
     Active Substance: MINOXIDIL
     Route: 061
  3. WOMENS ROGAINE UNSCENTED [Suspect]
     Active Substance: MINOXIDIL
     Indication: ALOPECIA
     Dosage: HALF CAP
     Route: 061
     Dates: end: 20150814

REACTIONS (2)
  - Madarosis [Recovered/Resolved]
  - Feeling abnormal [Unknown]
